FAERS Safety Report 9908044 (Version 1)
Quarter: 2014Q1

REPORT INFORMATION
  Report Type: Spontaneous
  Country: US (occurrence: None)
  Receive Date: 20140212
  Receipt Date: 20140212
  Transmission Date: 20141002
  Serious: Yes (Hospitalization)
  Sender: FDA-Public Use
  Company Number: None

PATIENT
  Age: 47 Year
  Sex: 0

DRUGS (1)
  1. TESTOSTERONE CYPIONATE [Suspect]
     Dosage: 2ML NJECTION TO THE BUTTOCKS

REACTIONS (1)
  - Pulmonary embolism [None]
